FAERS Safety Report 13133226 (Version 1)
Quarter: 2017Q1

REPORT INFORMATION
  Report Type: Spontaneous
  Country: US (occurrence: US)
  Receive Date: 20170119
  Receipt Date: 20170119
  Transmission Date: 20170428
  Serious: Yes (Hospitalization)
  Sender: FDA-Public Use
  Company Number: None

PATIENT
  Age: 63 Year
  Sex: Male
  Weight: 83.37 kg

DRUGS (1)
  1. TEMOZOLOMIDE. [Suspect]
     Active Substance: TEMOZOLOMIDE
     Dates: end: 20170115

REACTIONS (6)
  - Seizure [None]
  - Muscular weakness [None]
  - Brain midline shift [None]
  - Facial paralysis [None]
  - Brain oedema [None]
  - Brain herniation [None]

NARRATIVE: CASE EVENT DATE: 20170116
